FAERS Safety Report 16756438 (Version 3)
Quarter: 2019Q4

REPORT INFORMATION
  Report Type: Report from Study
  Country: US (occurrence: US)
  Receive Date: 20190829
  Receipt Date: 20191118
  Transmission Date: 20200122
  Serious: Yes (Other)
  Sender: FDA-Public Use
  Company Number: PHEH2019US035884

PATIENT
  Sex: Female
  Weight: 58.97 kg

DRUGS (2)
  1. REMODULIN [Concomitant]
     Active Substance: TREPROSTINIL
     Indication: PRODUCT USED FOR UNKNOWN INDICATION
     Route: 041
  2. TREPROSTINIL. [Suspect]
     Active Substance: TREPROSTINIL
     Indication: PULMONARY ARTERIAL HYPERTENSION
     Dosage: 86 NG/KG/MIN, CONTINUOUS
     Route: 042
     Dates: start: 20190430

REACTIONS (4)
  - Upper limb fracture [Unknown]
  - Cough [Unknown]
  - Diarrhoea [Unknown]
  - Dry throat [Unknown]
